FAERS Safety Report 4371282-X (Version None)
Quarter: 2004Q2

REPORT INFORMATION
  Report Type: 
  Country: None (occurrence: None)
  Receive Date: 20040604
  Receipt Date: 20040525
  Transmission Date: 20050107
  Serious: Yes (Other)
  Sender: FDA-Public Use
  Company Number: GB-MERCK-0405GBR00189

PATIENT
  Age: 38 Year
  Sex: Male

DRUGS (7)
  1. CLOZAPINE [Suspect]
     Indication: SCHIZOPHRENIA
     Route: 048
     Dates: start: 20031101, end: 20030101
  2. CLOZAPINE [Suspect]
     Route: 048
     Dates: start: 20030327, end: 20031101
  3. LITHIUM ACETATE [Suspect]
     Route: 065
  4. VIOXX [Suspect]
     Indication: ARTHRALGIA
     Route: 048
     Dates: end: 20030101
  5. TRAMADOL HYDROCHLORIDE [Concomitant]
     Indication: BACK PAIN
     Route: 065
     Dates: start: 20040108
  6. CLOZAPINE [Suspect]
     Route: 048
     Dates: start: 20030109, end: 20030326
  7. CLOZAPINE [Suspect]
     Route: 048
     Dates: start: 20030101

REACTIONS (3)
  - ASTHENIA [None]
  - CONVULSION [None]
  - DRUG INTERACTION [None]
